FAERS Safety Report 6810266-6 (Version None)
Quarter: 2010Q2

REPORT INFORMATION
  Report Type: 
  Country: None (occurrence: None)
  Receive Date: 20100630
  Receipt Date: 20100628
  Transmission Date: 20101027
  Serious: Yes (Hospitalization)
  Sender: FDA-Public Use
  Company Number: DE-BRISTOL-MYERS SQUIBB COMPANY-14876791

PATIENT
  Age: 61 Year

DRUGS (9)
  1. CETUXIMAB [Suspect]
     Indication: PHARYNGEAL CANCER STAGE UNSPECIFIED
     Dosage: RECENT INF ON 12NOV09
     Route: 042
     Dates: start: 20091105, end: 20091112
  2. CISPLATIN [Suspect]
     Indication: PHARYNGEAL CANCER STAGE UNSPECIFIED
     Dosage: 1DF- 50 (NO UNIT SPECIFIED).RECENT INF ON 12NOV09
     Route: 042
     Dates: start: 20091105, end: 20091112
  3. DOCETAXEL [Suspect]
     Indication: PHARYNGEAL CANCER STAGE UNSPECIFIED
     Dosage: 1DF- 70 (NO UNITS SPECIFIED);RECENT INF ON 12NOV09
     Route: 042
     Dates: start: 20091105, end: 20091112
  4. PANTOZOL [Concomitant]
     Route: 042
  5. DIFLUCAN [Concomitant]
     Route: 042
  6. CIPRO [Concomitant]
     Route: 042
  7. VERGENTAN [Concomitant]
     Route: 042
  8. DURAGESIC-100 [Concomitant]
     Dosage: 1DF- 150 MICROGRAM/H
  9. LYRICA [Concomitant]

REACTIONS (3)
  - DUODENAL ULCER [None]
  - PAIN [None]
  - SUBILEUS [None]
